FAERS Safety Report 4864492-6 (Version None)
Quarter: 2005Q4

REPORT INFORMATION
  Report Type: 
  Country: None (occurrence: None)
  Receive Date: 20051222
  Receipt Date: 20051107
  Transmission Date: 20060501
  Serious: Yes (Hospitalization)
  Sender: FDA-Public Use
  Company Number: 2005CG01870

PATIENT
  Age: 18274 Day
  Sex: Male
  Weight: 92 kg

DRUGS (2)
  1. CARBOCAINE [Suspect]
     Indication: NERVE BLOCK
     Route: 053
     Dates: start: 20051029, end: 20051029
  2. PROPOFOL [Concomitant]
     Route: 042
     Dates: start: 20051029, end: 20051029

REACTIONS (1)
  - NEUROMUSCULAR BLOCK PROLONGED [None]
